FAERS Safety Report 10215674 (Version 3)
Quarter: 2014Q4

REPORT INFORMATION
  Report Type: Spontaneous
  Country: FR (occurrence: None)
  Receive Date: 20140602
  Receipt Date: 20141219
  Transmission Date: 20150528
  Serious: Yes (Other)
  Sender: FDA-Public Use
  Company Number: NL01PV14.36113

PATIENT
  Age: 17 Year
  Sex: Female

DRUGS (2)
  1. ZOLPIDEM [Suspect]
     Active Substance: ZOLPIDEM\ZOLPIDEM TARTRATE
     Indication: PRODUCT USED FOR UNKNOWN INDICATION
     Dosage: 140 MG, SINGLE (14 X 10 MG TABLETS), ORAL
     Route: 048
     Dates: start: 20140513, end: 20140513
  2. SPASFON LYOC (PHLORGLUCINOL) [Concomitant]

REACTIONS (3)
  - Intentional product misuse [None]
  - Somnolence [None]
  - Intentional overdose [None]

NARRATIVE: CASE EVENT DATE: 20140513
